FAERS Safety Report 5667824-4 (Version None)
Quarter: 2008Q1

REPORT INFORMATION
  Report Type: 
  Country: None (occurrence: None)
  Receive Date: 20080315
  Receipt Date: 20080207
  Transmission Date: 20080703
  Serious: No
  Sender: FDA-Public Use
  Company Number: US-ABBOTT-08P-163-0437480-00

PATIENT
  Sex: Female
  Weight: 64.468 kg

DRUGS (17)
  1. HUMIRA [Suspect]
     Indication: RHEUMATOID ARTHRITIS
     Route: 058
     Dates: start: 20060101, end: 20060101
  2. HUMIRA [Suspect]
     Indication: CROHN'S DISEASE
     Route: 058
     Dates: start: 20060101, end: 20060101
  3. HUMIRA [Suspect]
     Route: 058
     Dates: start: 20060101
  4. FENTANYL [Concomitant]
     Indication: RHEUMATOID ARTHRITIS
     Dosage: PATCH
     Route: 061
  5. ALENDRONATE SODIUM [Concomitant]
     Indication: OSTEOPOROSIS
     Route: 048
  6. LEVOTHYROXINE SODIUM [Concomitant]
     Indication: HYPOTHYROIDISM
     Route: 048
  7. AZATHIOPRINE [Concomitant]
     Indication: GASTROINTESTINAL INFLAMMATION
     Route: 048
  8. PREDNISONE [Concomitant]
     Indication: RHEUMATOID ARTHRITIS
     Route: 048
  9. ALPRAZOLAM [Concomitant]
     Indication: ANXIETY
     Dosage: `
     Route: 048
  10. ALPRAZOLAM [Concomitant]
  11. FUROSEMIDE [Concomitant]
     Indication: THYROID DISORDER
     Route: 048
  12. FUROSEMIDE [Concomitant]
     Indication: SWELLING
  13. FEXOFENADINE [Concomitant]
     Indication: PROPHYLAXIS
     Route: 048
  14. FEXOFENADINE [Concomitant]
     Indication: RASH
  15. BENADRYL [Concomitant]
     Indication: PROPHYLAXIS
  16. BENADRYL [Concomitant]
     Indication: RASH
  17. LORTAB [Concomitant]
     Indication: PAIN

REACTIONS (1)
  - PAIN [None]
